FAERS Safety Report 7652659-3 (Version None)
Quarter: 2011Q3

REPORT INFORMATION
  Report Type: 
  Country: None (occurrence: None)
  Receive Date: 20110802
  Receipt Date: 20110802
  Transmission Date: 20111222
  Serious: Yes (Life-Threatening)
  Sender: FDA-Public Use
  Company Number: None

PATIENT
  Sex: Female
  Weight: 73.4827 kg

DRUGS (4)
  1. NIFEDIPINE [Suspect]
     Indication: CARDIAC FAILURE CONGESTIVE
     Dosage: 60MG 1XDAY ORAL
     Route: 048
     Dates: start: 20020401
  2. NIFEDIPINE [Suspect]
     Indication: HYPERTENSION
     Dosage: 60MG 1XDAY ORAL
     Route: 048
     Dates: start: 20020401
  3. NIFEDIPINE [Suspect]
     Indication: CARDIAC FAILURE CONGESTIVE
     Dosage: 60MG 1XDAY ORAL
     Route: 048
     Dates: start: 20101210, end: 20110114
  4. NIFEDIPINE [Suspect]
     Indication: HYPERTENSION
     Dosage: 60MG 1XDAY ORAL
     Route: 048
     Dates: start: 20101210, end: 20110114

REACTIONS (4)
  - FEELING JITTERY [None]
  - FLUSHING [None]
  - FEELING HOT [None]
  - PRODUCT SUBSTITUTION ISSUE [None]
